FAERS Safety Report 10873188 (Version 3)
Quarter: 2015Q2

REPORT INFORMATION
  Report Type: Spontaneous
  Country: SE (occurrence: None)
  Receive Date: 20150223
  Receipt Date: 20150522
  Transmission Date: 20150821
  Serious: Yes (Other)
  Sender: FDA-Public Use
  Company Number: 2015SE0055

PATIENT
  Age: 25 Year
  Sex: Male

DRUGS (2)
  1. KINERET [Suspect]
     Active Substance: ANAKINRA
     Indication: AUTOIMMUNE DISORDER
     Dosage: 100 MG (100 MG, 1 IN 1 D)
     Dates: start: 20150128, end: 20150128
  2. CITODON (CO-DAFALGAN) (PARACETAMOL, CODEINE PHOSPHATE HEMIHYDRATE) [Concomitant]

REACTIONS (4)
  - Blood pressure decreased [None]
  - Sepsis [None]
  - Systemic inflammatory response syndrome [None]
  - Meningitis [None]

NARRATIVE: CASE EVENT DATE: 201501
